FAERS Safety Report 7005248-8 (Version None)
Quarter: 2010Q3

REPORT INFORMATION
  Report Type: 
  Country: None (occurrence: None)
  Receive Date: 20100920
  Receipt Date: 20100920
  Transmission Date: 20110219
  Serious: No
  Sender: FDA-Public Use
  Company Number: None

PATIENT
  Age: 46 Year
  Sex: Female

DRUGS (4)
  1. GABAPENTIN [Suspect]
     Indication: MIGRAINE PROPHYLAXIS
     Dosage: 600MG AM 600MG PM; 900MG BS PO
     Route: 048
     Dates: start: 20060105, end: 20060501
  2. NASONEX [Concomitant]
  3. MVI WITH IRON AND CALCIUM [Concomitant]
  4. MAXALT [Concomitant]

REACTIONS (4)
  - DRUG INTOLERANCE [None]
  - NAUSEA [None]
  - PRODUCT SUBSTITUTION ISSUE [None]
  - SEDATION [None]
